FAERS Safety Report 4497655-2 (Version None)
Quarter: 2004Q4

REPORT INFORMATION
  Report Type: 
  Country: None (occurrence: None)
  Receive Date: 20041105
  Receipt Date: 20041023
  Transmission Date: 20050328
  Serious: Yes (Other)
  Sender: FDA-Public Use
  Company Number: 2004076777

PATIENT
  Sex: Female

DRUGS (7)
  1. GEODON [Suspect]
     Indication: SLEEP DISORDER
     Dosage: 240 MG (240 MG) ORAL
     Route: 048
     Dates: start: 20040317, end: 20040916
  2. FLUVOXAMINE MALEATE [Concomitant]
  3. BUPROPION HYDROCHLORIDE [Concomitant]
  4. TIAGABINE HYDROCHLORIDE [Concomitant]
  5. MODAFINIL [Concomitant]
  6. CLONAZEPAM [Concomitant]
  7. ZOLPIDEM TARTRATE [Concomitant]

REACTIONS (4)
  - BLOOD PROLACTIN INCREASED [None]
  - GALACTORRHOEA [None]
  - MALIGNANT MELANOMA [None]
  - OFF LABEL USE [None]
